FAERS Safety Report 8438731 (Version 2)
Quarter: 2012Q4

REPORT INFORMATION
  Report Type: Report from Study
  Country: DE (occurrence: DE)
  Receive Date: 20120302
  Receipt Date: 20120831
  Transmission Date: 20130627
  Serious: Yes (Death, Other)
  Sender: FDA-Public Use
  Company Number: DE-ROCHE-1033498

PATIENT
  Age: 64 Year
  Sex: Female
  Weight: 76 kg

DRUGS (7)
  1. AVASTIN [Suspect]
     Indication: BREAST CANCER
     Dosage: Last dose prior to SAE: 19/Jan/2012
     Dates: start: 20111223
  2. XELODA [Suspect]
     Indication: BREAST CANCER
     Dosage: Last dose prior to SAE: 19/Jan/2012
     Dates: start: 20111223
  3. VINORELBINE TARTRATE [Suspect]
     Indication: BREAST CANCER
     Dosage: Last dose prior to SAE: 19/Jan/2012
     Dates: start: 20111223, end: 20120208
  4. METAMIZOL [Concomitant]
     Dates: start: 20111223
  5. RETACRIT [Concomitant]
     Dates: start: 20111230
  6. VERGENTAN [Concomitant]
     Dates: start: 20111223
  7. ZOLEDRONATE [Concomitant]
     Dates: start: 20111129

REACTIONS (2)
  - Aspiration [Fatal]
  - Pulmonary embolism [Fatal]
